FAERS Safety Report 16190612 (Version 1)
Quarter: 2019Q2

REPORT INFORMATION
  Report Type: Spontaneous
  Country: FR (occurrence: FR)
  Receive Date: 20190412
  Receipt Date: 20190412
  Transmission Date: 20190711
  Serious: Yes (Other)
  Sender: FDA-Public Use
  Company Number: FR-PFIZER INC-2019150559

PATIENT
  Age: 61 Year
  Sex: Male
  Weight: 78 kg

DRUGS (4)
  1. ARACYTINE [Suspect]
     Active Substance: CYTARABINE
     Indication: B-CELL LYMPHOMA
     Dosage: 3800 MG, CYCLIC
     Route: 042
     Dates: start: 20180824, end: 20180921
  2. OXALIPLATINE ACCORD [Suspect]
     Active Substance: OXALIPLATIN
     Indication: B-CELL LYMPHOMA
     Dosage: 195 MG, CYCLIC (C1 24AUG2018; C2 21SEP2018)
     Route: 041
     Dates: start: 20180824, end: 20180921
  3. ADCETRIS [Suspect]
     Active Substance: BRENTUXIMAB VEDOTIN
     Indication: B-CELL LYMPHOMA
     Dosage: 135 MG, CYCLIC (C1 14AUG2018; C2 21SEP2018)
     Route: 042
     Dates: start: 20180814, end: 20180921
  4. ENDOXAN [CYCLOPHOSPHAMIDE MONOHYDRATE] [Suspect]
     Active Substance: CYCLOPHOSPHAMIDE
     Indication: WRONG PRODUCT ADMINISTERED
     Dosage: 160 MG, 1X/DAY
     Route: 042
     Dates: start: 20180825, end: 20180825

REACTIONS (2)
  - Visual acuity reduced transiently [Recovered/Resolved]
  - Papilloedema [Recovered/Resolved]

NARRATIVE: CASE EVENT DATE: 20180917
